FAERS Safety Report 11167963 (Version 2)
Quarter: 2015Q3

REPORT INFORMATION
  Report Type: Spontaneous
  Country: US (occurrence: US)
  Receive Date: 20150605
  Receipt Date: 20150706
  Transmission Date: 20151125
  Serious: Yes (Hospitalization)
  Sender: FDA-Public Use
  Company Number: US-PFIZER INC-2015179819

PATIENT
  Age: 80 Year
  Sex: Male
  Weight: 77 kg

DRUGS (1)
  1. VFEND [Suspect]
     Active Substance: VORICONAZOLE
     Indication: ASPERGILLUS INFECTION
     Dosage: 200 MG, 2X/DAY
     Route: 048
     Dates: start: 201501

REACTIONS (1)
  - Cervical vertebral fracture [Not Recovered/Not Resolved]
